FAERS Safety Report 8509537-7 (Version None)
Quarter: 2012Q3

REPORT INFORMATION
  Report Type: 
  Country: None (occurrence: None)
  Receive Date: 20120702
  Receipt Date: 20120620
  Transmission Date: 20120928
  Serious: Yes (Other)
  Sender: FDA-Public Use
  Company Number: 2012SP020278

PATIENT
  Age: 50 Year
  Sex: Female

DRUGS (4)
  1. PEGATRON (PEGYLATED INTERFERON ALFA-2B W/RIBAVIRIN) [Suspect]
     Indication: PRODUCT USED FOR UNKNOWN INDICATION
     Dates: start: 20010101
  2. PEGATRON (PEGYLATED INTERFERON ALFA-2B W/RIBAVIRIN) [Suspect]
     Indication: PRODUCT USED FOR UNKNOWN INDICATION
     Dates: start: 20120222
  3. PRISTIQ [Concomitant]
  4. VICTRELIS [Suspect]
     Indication: PRODUCT USED FOR UNKNOWN INDICATION

REACTIONS (14)
  - ANAEMIA [None]
  - RED BLOOD CELL COUNT DECREASED [None]
  - RASH [None]
  - FATIGUE [None]
  - SKIN MASS [None]
  - SUICIDAL IDEATION [None]
  - INAPPROPRIATE SCHEDULE OF DRUG ADMINISTRATION [None]
  - INCORRECT DOSE ADMINISTERED [None]
  - DYSPNOEA [None]
  - DRY SKIN [None]
  - NEUTROPHIL COUNT DECREASED [None]
  - DIARRHOEA [None]
  - VOMITING [None]
  - VIRAL INFECTION [None]
